FAERS Safety Report 9521248 (Version 1)
Quarter: 2013Q3

REPORT INFORMATION
  Report Type: Spontaneous
  Country: US (occurrence: US)
  Receive Date: 20130913
  Receipt Date: 20130913
  Transmission Date: 20140515
  Serious: Yes (Other)
  Sender: FDA-Public Use
  Company Number: US-ASTRAZENECA-2013SE68248

PATIENT
  Age: 70 Year
  Sex: Female
  Weight: 70.3 kg

DRUGS (4)
  1. SYMBICORT [Suspect]
     Indication: ASTHMA
     Dosage: 2 PUFFS BID, 160/4.5, UNKNOWN FREQUENCY.
     Route: 055
     Dates: start: 20130813
  2. TOPROL XL [Suspect]
     Indication: SUPRAVENTRICULAR TACHYCARDIA
     Route: 048
     Dates: start: 2000
  3. VENTOLIN [Concomitant]
     Indication: INHALATION THERAPY
     Dosage: PRN
     Route: 055
     Dates: start: 20130813
  4. LORSARTIN [Concomitant]
     Indication: HYPERTENSION
     Route: 048
     Dates: start: 2009

REACTIONS (7)
  - Pneumonia [Not Recovered/Not Resolved]
  - Vertigo [Recovered/Resolved]
  - Lip blister [Not Recovered/Not Resolved]
  - Dysphonia [Not Recovered/Not Resolved]
  - Dysphonia [Not Recovered/Not Resolved]
  - Aphonia [Not Recovered/Not Resolved]
  - Dizziness [Not Recovered/Not Resolved]
